FAERS Safety Report 16883949 (Version 1)
Quarter: 2019Q4

REPORT INFORMATION
  Report Type: Spontaneous
  Country: CA (occurrence: CA)
  Receive Date: 20191004
  Receipt Date: 20191004
  Transmission Date: 20200122
  Serious: Yes (Disabling, Other)
  Sender: FDA-Public Use
  Company Number: CA-AUROBINDO-AUR-APL-2019-063568

PATIENT
  Sex: Female

DRUGS (1)
  1. CIPROFLOXACIN FILM-COATED TABLETS [Suspect]
     Active Substance: CIPROFLOXACIN
     Indication: PRODUCT USED FOR UNKNOWN INDICATION
     Dosage: 2 DOSAGE FORM, ONCE A DAY
     Route: 048

REACTIONS (4)
  - Physical disability [Not Recovered/Not Resolved]
  - Tendon rupture [Not Recovered/Not Resolved]
  - Deformity [Not Recovered/Not Resolved]
  - Pain in extremity [Not Recovered/Not Resolved]
